FAERS Safety Report 10613411 (Version 3)
Quarter: 2015Q3

REPORT INFORMATION
  Report Type: Report from Study
  Country: US (occurrence: US)
  Receive Date: 20141128
  Receipt Date: 20150720
  Transmission Date: 20151125
  Serious: Yes (Other)
  Sender: FDA-Public Use
  Company Number: US-JNJFOC-20141116049

PATIENT
  Sex: Male

DRUGS (11)
  1. REMICADE [Suspect]
     Active Substance: INFLIXIMAB
     Indication: PSORIATIC ARTHROPATHY
     Route: 042
  2. PLAVIX [Concomitant]
     Active Substance: CLOPIDOGREL BISULFATE
     Indication: ARTERIOSCLEROSIS
     Route: 065
  3. LOSARTAN. [Concomitant]
     Active Substance: LOSARTAN
     Dosage: 1/2 EACH DAY
     Route: 065
  4. HCTZ [Concomitant]
     Active Substance: HYDROCHLOROTHIAZIDE
     Dosage: 1/2 EACH DAY
     Route: 065
  5. FOLIC ACID. [Concomitant]
     Active Substance: FOLIC ACID
     Route: 065
  6. METHOTREXATE [Concomitant]
     Active Substance: METHOTREXATE
     Route: 065
  7. CENTRUM SILVER [Concomitant]
     Active Substance: VITAMINS
     Route: 065
  8. COQ10 [Concomitant]
     Active Substance: UBIDECARENONE
     Route: 065
  9. LIPITOR [Concomitant]
     Active Substance: ATORVASTATIN CALCIUM
     Dosage: 1 A WEEK
     Route: 065
  10. REMICADE [Suspect]
     Active Substance: INFLIXIMAB
     Indication: PSORIATIC ARTHROPATHY
     Route: 042
     Dates: start: 2013
  11. OCUVITE NOS [Concomitant]
     Route: 065

REACTIONS (7)
  - Drug ineffective [Unknown]
  - Skin cancer [Not Recovered/Not Resolved]
  - Hearing impaired [Not Recovered/Not Resolved]
  - Arthritis [Unknown]
  - Proctalgia [Not Recovered/Not Resolved]
  - Polyarthritis [Unknown]
  - Anorectal discomfort [Not Recovered/Not Resolved]

NARRATIVE: CASE EVENT DATE: 2013
